FAERS Safety Report 5499620-5 (Version None)
Quarter: 2007Q4

REPORT INFORMATION
  Report Type: 
  Country: None (occurrence: None)
  Receive Date: 20071026
  Receipt Date: 20071016
  Transmission Date: 20080405
  Serious: Yes (Hospitalization)
  Sender: FDA-Public Use
  Company Number: JP-PFIZER INC-2007088015

PATIENT
  Age: 58 Year
  Sex: Female

DRUGS (1)
  1. MIGLITOL TABLET [Suspect]
     Indication: DIABETES MELLITUS
     Dosage: DAILY DOSE:150MG
     Route: 048
     Dates: start: 20070818, end: 20070917

REACTIONS (1)
  - ILEUS [None]
